FAERS Safety Report 5708527-7 (Version None)
Quarter: 2008Q2

REPORT INFORMATION
  Report Type: 
  Country: None (occurrence: None)
  Receive Date: 20080417
  Receipt Date: 20080407
  Transmission Date: 20081010
  Serious: Yes (Other)
  Sender: FDA-Public Use
  Company Number: JP-PFIZER INC-2008031311

PATIENT
  Age: 64 Year
  Sex: Male

DRUGS (2)
  1. XALATAN [Suspect]
     Indication: INTRAOCULAR PRESSURE INCREASED
     Route: 061
  2. BETA BLOCKING AGENTS [Concomitant]
     Indication: OPEN ANGLE GLAUCOMA
     Route: 061

REACTIONS (1)
  - MACULAR OEDEMA [None]
